FAERS Safety Report 14028992 (Version 1)
Quarter: 2017Q3

REPORT INFORMATION
  Report Type: Spontaneous
  Country: US (occurrence: US)
  Receive Date: 20170930
  Receipt Date: 20170930
  Transmission Date: 20171128
  Serious: No
  Sender: FDA-Public Use
  Company Number: US-SA-2017SA077330

PATIENT
  Age: 49 Year
  Sex: Female

DRUGS (10)
  1. COQ10 [Concomitant]
     Active Substance: UBIDECARENONE
  2. FISH OIL [Concomitant]
     Active Substance: FISH OIL
  3. TIZANIDINE. [Suspect]
     Active Substance: TIZANIDINE
     Indication: MUSCLE SPASTICITY
     Route: 048
     Dates: start: 2012
  4. AUBAGIO [Suspect]
     Active Substance: TERIFLUNOMIDE
     Indication: MULTIPLE SCLEROSIS
     Route: 065
  5. AMPYRA [Suspect]
     Active Substance: DALFAMPRIDINE
     Indication: MULTIPLE SCLEROSIS
     Route: 048
     Dates: start: 20161212
  6. CALCIUM [Concomitant]
     Active Substance: CALCIUM
  7. AMPYRA [Suspect]
     Active Substance: DALFAMPRIDINE
     Indication: MULTIPLE SCLEROSIS
     Route: 048
     Dates: start: 20161116
  8. VITAMIN D [Concomitant]
     Active Substance: CHOLECALCIFEROL
  9. VITAMIN B12 [Concomitant]
     Active Substance: CYANOCOBALAMIN
  10. FLAX SEED [Concomitant]
     Active Substance: FLAX SEED

REACTIONS (4)
  - Peripheral swelling [Recovering/Resolving]
  - Diarrhoea [Recovered/Resolved]
  - Flatulence [Unknown]
  - Feeling jittery [Recovered/Resolved]

NARRATIVE: CASE EVENT DATE: 20161204
